FAERS Safety Report 22656473 (Version 1)
Quarter: 2023Q2

REPORT INFORMATION
  Report Type: Spontaneous
  Country: US (occurrence: US)
  Receive Date: 20230629
  Receipt Date: 20230629
  Transmission Date: 20230722
  Serious: No
  Sender: FDA-Public Use
  Company Number: US-drreddys-LIT/USA/23/0165459

PATIENT
  Age: 40 Year
  Sex: Male

DRUGS (6)
  1. HYDROXYZINE HYDROCHLORIDE [Suspect]
     Active Substance: HYDROXYZINE HYDROCHLORIDE
     Indication: Pruritus
  2. PREGABALIN [Suspect]
     Active Substance: PREGABALIN
     Indication: Sciatica
  3. SERTRALINE [Suspect]
     Active Substance: SERTRALINE HYDROCHLORIDE
     Indication: Pruritus
  4. RUXOLITINIB [Suspect]
     Active Substance: RUXOLITINIB
     Indication: Pruritus
  5. TRIAMCINOLONE ACETONIDE [Suspect]
     Active Substance: TRIAMCINOLONE ACETONIDE
     Indication: Sciatica
  6. ASPIRIN [Suspect]
     Active Substance: ASPIRIN
     Indication: Sciatica
     Dosage: LOW-DOSE

REACTIONS (3)
  - Pruritus [Recovering/Resolving]
  - Sedation [Recovering/Resolving]
  - Drug ineffective [Unknown]
